FAERS Safety Report 8277480-7 (Version None)
Quarter: 2012Q2

REPORT INFORMATION
  Report Type: 
  Country: None (occurrence: None)
  Receive Date: 20120412
  Receipt Date: 20120404
  Transmission Date: 20120825
  Serious: Yes (Other)
  Sender: FDA-Public Use
  Company Number: PHHY2012MY029026

PATIENT
  Age: 52 Year
  Sex: Male

DRUGS (1)
  1. METHOTREXATE [Suspect]
     Dosage: 3.75 MG, TID

REACTIONS (14)
  - PYREXIA [None]
  - NAUSEA [None]
  - HEPATITIS B VIRUS TEST POSITIVE [None]
  - PANCYTOPENIA [None]
  - RENAL IMPAIRMENT [None]
  - SKIN PLAQUE [None]
  - STOMATITIS [None]
  - ORAL MUCOSA EROSION [None]
  - DEHYDRATION [None]
  - PAIN OF SKIN [None]
  - PSORIASIS [None]
  - SKIN ULCER [None]
  - MOUTH ULCERATION [None]
  - ERYTHEMA [None]
